FAERS Safety Report 4690581-5 (Version None)
Quarter: 2005Q2

REPORT INFORMATION
  Report Type: 
  Country: None (occurrence: None)
  Receive Date: 20050615
  Receipt Date: 20050606
  Transmission Date: 20051028
  Serious: Yes (Hospitalization)
  Sender: FDA-Public Use
  Company Number: FR-ROCHE-406981

PATIENT
  Age: 60 Year
  Sex: Female
  Weight: 70 kg

DRUGS (7)
  1. RIVOTRIL [Suspect]
     Indication: DRUG USE FOR UNKNOWN INDICATION
     Route: 048
  2. NEORECORMON [Suspect]
     Route: 042
     Dates: start: 20050426
  3. CELLCEPT [Suspect]
     Indication: RENAL TRANSPLANT
     Route: 048
  4. KENZEN [Suspect]
     Indication: DRUG USE FOR UNKNOWN INDICATION
     Route: 048
  5. AMLODIPINE BESYLATE [Suspect]
     Indication: DRUG USE FOR UNKNOWN INDICATION
     Route: 048
     Dates: start: 20050427
  6. PHOSPHONEUROS [Suspect]
     Indication: DRUG USE FOR UNKNOWN INDICATION
     Route: 048
     Dates: start: 20050428, end: 20050510
  7. STILNOX [Suspect]
     Route: 048

REACTIONS (4)
  - CHILLS [None]
  - HYPERTHERMIA [None]
  - PYELONEPHRITIS [None]
  - PYREXIA [None]
